FAERS Safety Report 12606593 (Version 1)
Quarter: 2016Q3

REPORT INFORMATION
  Report Type: Spontaneous
  Country: US (occurrence: None)
  Receive Date: 20160728
  Receipt Date: 20160728
  Transmission Date: 20161109
  Serious: No
  Sender: FDA-Public Use
  Company Number: None

PATIENT
  Age: 33 Year
  Sex: Female
  Weight: 97.07 kg

DRUGS (1)
  1. BACTRIM DS [Suspect]
     Active Substance: SULFAMETHOXAZOLE\TRIMETHOPRIM
     Indication: INFECTED DERMAL CYST
     Route: 048
     Dates: start: 20160725

REACTIONS (2)
  - Pharyngeal oedema [None]
  - Rash [None]

NARRATIVE: CASE EVENT DATE: 20160725
